FAERS Safety Report 11657037 (Version 4)
Quarter: 2023Q1

REPORT INFORMATION
  Report Type: Report from Study
  Country: US (occurrence: US)
  Receive Date: 20151023
  Receipt Date: 20230322
  Transmission Date: 20230417
  Serious: Yes (Other)
  Sender: FDA-Public Use
  Company Number: US-JAZZ-2015-US-016720

PATIENT
  Sex: Female
  Weight: 109 kg

DRUGS (27)
  1. XYREM [Suspect]
     Active Substance: SODIUM OXYBATE
     Indication: Circadian rhythm sleep disorder
     Dosage: 2.5 GRAM, BID
     Route: 048
     Dates: start: 200612, end: 2007
  2. XYREM [Suspect]
     Active Substance: SODIUM OXYBATE
     Indication: Sleep disorder
     Dosage: DOSE ADJUSTMENT
  3. XYREM [Suspect]
     Active Substance: SODIUM OXYBATE
     Indication: Narcolepsy
     Dosage: 4.5 GRAM, BID
     Route: 048
     Dates: start: 200911
  4. XYREM [Suspect]
     Active Substance: SODIUM OXYBATE
     Indication: Cataplexy
     Dosage: DOSE ADJUSTMENT
  5. XYREM [Suspect]
     Active Substance: SODIUM OXYBATE
     Indication: Somnolence
  6. PNEUMOVAX 23 [Suspect]
     Active Substance: PNEUMOCOCCAL VACCINE, POLYVALENT 23
     Indication: Product used for unknown indication
  7. PFIZER-BIONTECH COVID-19 VACCINE [Suspect]
     Active Substance: TOZINAMERAN
     Indication: Product used for unknown indication
  8. ALBUTEROL SULFATE [Concomitant]
     Active Substance: ALBUTEROL SULFATE
     Indication: Product used for unknown indication
     Dosage: UNK
     Dates: start: 20151013
  9. Ery-tab EC [Concomitant]
     Indication: Product used for unknown indication
     Dosage: UNK
     Dates: start: 20151013
  10. ERYPED [Concomitant]
     Active Substance: ERYTHROMYCIN ETHYLSUCCINATE
     Indication: Product used for unknown indication
     Dosage: 200MG/5ML
     Dates: start: 20151013, end: 20151014
  11. MELATONIN [Concomitant]
     Active Substance: MELATONIN
     Indication: Product used for unknown indication
     Dosage: UNK
     Dates: start: 20151013
  12. MIRALAX [Concomitant]
     Active Substance: POLYETHYLENE GLYCOL 3350
     Indication: Product used for unknown indication
     Dosage: UNK
     Dates: start: 20151013
  13. NEXIUM [Concomitant]
     Active Substance: ESOMEPRAZOLE MAGNESIUM
     Indication: Product used for unknown indication
     Dosage: UNK
     Dates: start: 20151013
  14. NUVARING [Concomitant]
     Active Substance: ETHINYL ESTRADIOL\ETONOGESTREL
     Indication: Product used for unknown indication
     Dosage: UNK
     Dates: start: 20151013, end: 20151015
  15. PROVIGIL [Concomitant]
     Active Substance: MODAFINIL
     Indication: Product used for unknown indication
     Dosage: UNK
     Dates: start: 20151013
  16. VITAMIN B12 [Concomitant]
     Active Substance: CYANOCOBALAMIN
     Indication: Product used for unknown indication
     Dosage: UNK
     Dates: start: 20151013
  17. ZYRTEC [Concomitant]
     Active Substance: CETIRIZINE HYDROCHLORIDE
     Indication: Product used for unknown indication
     Dosage: UNK
     Dates: start: 20151013
  18. REGLAN [Concomitant]
     Active Substance: METOCLOPRAMIDE HYDROCHLORIDE
     Indication: Product used for unknown indication
     Dosage: UNK
     Dates: start: 20150101, end: 20151014
  19. ZELNORM [Concomitant]
     Active Substance: TEGASEROD MALEATE
     Indication: Product used for unknown indication
     Dosage: UNK
     Dates: start: 20150101, end: 20151014
  20. RICAM [CETIRIZINE HYDROCHLORIDE] [Concomitant]
     Dosage: UNK
  21. ALBUTEROL SULFATE [Concomitant]
     Active Substance: ALBUTEROL SULFATE
     Dosage: UNK
     Dates: start: 20151013
  22. ONDANSETRON [Concomitant]
     Active Substance: ONDANSETRON
     Dosage: UNK
     Dates: start: 20151014
  23. MONTELUKAST SODIUM [Concomitant]
     Active Substance: MONTELUKAST SODIUM
     Dosage: UNK
     Dates: start: 20151014
  24. LEVOCARNITINE [Concomitant]
     Active Substance: LEVOCARNITINE
     Dosage: UNK
     Dates: start: 20151014
  25. BIQUINOL [Concomitant]
     Dosage: UNK
     Dates: start: 20151014
  26. NATURAL LIFE ACAI BERRY [Concomitant]
     Dosage: UNK
     Dates: start: 20151014
  27. FISH OIL [Concomitant]
     Active Substance: FISH OIL
     Dosage: UNK
     Dates: start: 20151014

REACTIONS (12)
  - Mitochondrial cytopathy [Recovered/Resolved]
  - Impaired gastric emptying [Unknown]
  - Loss of consciousness [Not Recovered/Not Resolved]
  - Sleep apnoea syndrome [Recovered/Resolved]
  - Mast cell activation syndrome [Unknown]
  - Hypersensitivity [Unknown]
  - Hepatic enzyme increased [Recovered/Resolved]
  - Migraine [Unknown]
  - Headache [Unknown]
  - Weight decreased [Unknown]
  - Muscle spasms [Unknown]
  - Dysphagia [Unknown]
